FAERS Safety Report 19247807 (Version 1)
Quarter: 2021Q2

REPORT INFORMATION
  Report Type: Spontaneous
  Country: GB (occurrence: GB)
  Receive Date: 20210512
  Receipt Date: 20210512
  Transmission Date: 20210717
  Serious: Yes (Other)
  Sender: FDA-Public Use
  Company Number: GB-ADVANZ PHARMA-202105003227

PATIENT

DRUGS (6)
  1. OMEPRAZOLE. [Concomitant]
     Active Substance: OMEPRAZOLE
     Indication: ILL-DEFINED DISORDER
     Dosage: TAKE ONE TWICE DAILY
     Dates: start: 20191003
  2. ATENOLOL. [Concomitant]
     Active Substance: ATENOLOL
     Indication: ILL-DEFINED DISORDER
     Dosage: 5ML SPOON DAILY
     Dates: start: 20210316
  3. RIVAROXABAN [Concomitant]
     Active Substance: RIVAROXABAN
     Indication: ILL-DEFINED DISORDER
     Dosage: TAKE ONE DAILY WITH FOOD
     Dates: start: 20171024
  4. ZEROBASE [Concomitant]
     Active Substance: MINERAL OIL\PARAFFIN
     Indication: ILL-DEFINED DISORDER
     Dosage: APPLY TO THE AFFECTED AREA(S) AS OFTEN AS REQUIRED
     Dates: start: 20171120
  5. DIGOXIN. [Suspect]
     Active Substance: DIGOXIN
     Dosage: TAKE ONE EVERY MORNING
     Dates: start: 20210315
  6. GAVISCON ADVANCE [Concomitant]
     Active Substance: POTASSIUM BICARBONATE\SODIUM ALGINATE
     Indication: ILL-DEFINED DISORDER
     Dosage: 5 ML, QID  IF NEEDED
     Dates: start: 20180710

REACTIONS (1)
  - Suicidal ideation [Recovered/Resolved]

NARRATIVE: CASE EVENT DATE: 20210428
